FAERS Safety Report 24924462 (Version 1)
Quarter: 2025Q1

REPORT INFORMATION
  Report Type: Other
  Country: US (occurrence: US)
  Receive Date: 20250204
  Receipt Date: 20250204
  Transmission Date: 20250409
  Serious: Yes (Hospitalization)
  Sender: NEUROCRINE BIOSCIENCES
  Company Number: US-NEUROCRINE BIOSCIENCES INC.-2024NBI11252

PATIENT
  Age: 69 Year
  Sex: Male

DRUGS (6)
  1. INGREZZA [Suspect]
     Active Substance: VALBENAZINE
     Indication: Tardive dyskinesia
     Route: 048
     Dates: start: 20240912, end: 20241029
  2. INGREZZA [Suspect]
     Active Substance: VALBENAZINE
     Route: 065
     Dates: start: 20240612, end: 20240912
  3. GABAPENTIN [Concomitant]
     Active Substance: GABAPENTIN
     Indication: Anxiety
     Route: 048
     Dates: start: 20201026
  4. MIRTAZAPINE [Concomitant]
     Active Substance: MIRTAZAPINE
     Route: 048
     Dates: start: 20240829
  5. TRINTELLIX [Concomitant]
     Active Substance: VORTIOXETINE HYDROBROMIDE
     Route: 048
     Dates: start: 20241001
  6. SPRAVATO [Concomitant]
     Active Substance: ESKETAMINE
     Route: 045
     Dates: start: 20240722, end: 20240904

REACTIONS (5)
  - Suicidal ideation [Recovered/Resolved]
  - Panic attack [Recovered/Resolved]
  - Anxiety [Recovered/Resolved]
  - Depression [Unknown]
  - Tremor [Unknown]

NARRATIVE: CASE EVENT DATE: 20240924
